FAERS Safety Report 9632091 (Version 2)
Quarter: 2013Q4

REPORT INFORMATION
  Report Type: Report from Study
  Country: CA (occurrence: CA)
  Receive Date: 20131018
  Receipt Date: 20131105
  Transmission Date: 20140711
  Serious: Yes (Death)
  Sender: FDA-Public Use
  Company Number: CA-CELGENEUS-028-50794-13102929

PATIENT
  Sex: 0

DRUGS (5)
  1. VIDAZA [Suspect]
     Indication: ACUTE MYELOID LEUKAEMIA
     Dosage: 75
     Route: 058
     Dates: start: 20130917, end: 201310
  2. HCTZ [Concomitant]
     Indication: HYPERTENSION
     Route: 065
     Dates: start: 2011, end: 2013
  3. RAMIPRIL [Concomitant]
     Indication: HYPERTENSION
     Route: 065
     Dates: start: 2012, end: 2013
  4. ARICEPT [Concomitant]
     Indication: DEMENTIA
     Route: 065
     Dates: start: 2012, end: 2013
  5. METFORMIN [Concomitant]
     Indication: DIABETES MELLITUS
     Route: 065
     Dates: start: 2010, end: 2013

REACTIONS (1)
  - Disease progression [Fatal]
